FAERS Safety Report 6163007-2 (Version None)
Quarter: 2009Q2

REPORT INFORMATION
  Report Type: 
  Country: None (occurrence: None)
  Receive Date: 20090420
  Receipt Date: 20090409
  Transmission Date: 20091009
  Serious: Yes (Death)
  Sender: FDA-Public Use
  Company Number: 2009AL002055

PATIENT
  Sex: Male

DRUGS (1)
  1. DIGOXIN [Suspect]
     Dosage: PO
     Route: 048

REACTIONS (7)
  - CEREBRAL HAEMORRHAGE [None]
  - ECONOMIC PROBLEM [None]
  - EMOTIONAL DISTRESS [None]
  - IMPAIRED WORK ABILITY [None]
  - INJURY [None]
  - PAIN [None]
  - SOCIAL PROBLEM [None]
